FAERS Safety Report 4507362-5 (Version None)
Quarter: 2004Q4

REPORT INFORMATION
  Report Type: 
  Country: None (occurrence: None)
  Receive Date: 20041118
  Receipt Date: 20041102
  Transmission Date: 20050328
  Serious: Yes (Hospitalization)
  Sender: FDA-Public Use
  Company Number: 140680USA

PATIENT
  Age: 67 Year
  Sex: Female
  Weight: 78.9259 kg

DRUGS (2)
  1. ETOPOSIDE [Suspect]
     Indication: SMALL CELL LUNG CANCER STAGE UNSPECIFIED
     Dosage: 120 MG/M2 DAILY INTRAVENOUS (NOS)
     Route: 042
     Dates: start: 20021101, end: 20021103
  2. CISPLATIN [Suspect]
     Indication: SMALL CELL LUNG CANCER STAGE UNSPECIFIED
     Dosage: 60 MG/M2 INTRAVENOUS (NOS)
     Route: 042
     Dates: start: 20021101, end: 20021101

REACTIONS (15)
  - ASTHENIA [None]
  - BLOOD PH INCREASED [None]
  - BLOOD UREA INCREASED [None]
  - CHEST PAIN [None]
  - DRUG TOXICITY [None]
  - HAEMATOCRIT DECREASED [None]
  - HAEMOGLOBIN DECREASED [None]
  - HYPOTENSION [None]
  - HYPOXIA [None]
  - NEUTROPENIA [None]
  - PCO2 DECREASED [None]
  - PLATELET COUNT DECREASED [None]
  - SEPTIC SHOCK [None]
  - TACHYCARDIA [None]
  - TREATMENT NONCOMPLIANCE [None]
